FAERS Safety Report 8891911 (Version 1)
Quarter: 2012Q4

REPORT INFORMATION
  Report Type: Spontaneous
  Country: US (occurrence: None)
  Receive Date: 20121105
  Receipt Date: 20121105
  Transmission Date: 20130627
  Serious: Yes (Other)
  Sender: FDA-Public Use
  Company Number: None

PATIENT
  Age: 79 Year
  Sex: Male
  Weight: 144.9 kg

DRUGS (1)
  1. DABIGATRAN [Suspect]
     Indication: ATRIAL FIBRILLATION WITH RAPID VENTRICULAR RESPONSE
     Route: 048
     Dates: start: 20121015, end: 20121026

REACTIONS (2)
  - Dyspepsia [None]
  - Chest pain [None]
